FAERS Safety Report 16041223 (Version 1)
Quarter: 2019Q1

REPORT INFORMATION
  Report Type: Spontaneous
  Country: US (occurrence: US)
  Receive Date: 20190306
  Receipt Date: 20190306
  Transmission Date: 20190418
  Serious: Yes (Hospitalization)
  Sender: FDA-Public Use
  Company Number: US-AKORN PHARMACEUTICALS-2018AKN01681

PATIENT
  Age: 24 Year
  Sex: Male
  Weight: 90.91 kg

DRUGS (7)
  1. JUBLIA [Concomitant]
     Active Substance: EFINACONAZOLE
  2. OXISTAT [Concomitant]
     Active Substance: OXICONAZOLE NITRATE
  3. MYORISAN [Suspect]
     Active Substance: ISOTRETINOIN
     Dosage: 80 MG, 1X/DAY
     Route: 048
     Dates: start: 20180816, end: 20180914
  4. MYORISAN [Suspect]
     Active Substance: ISOTRETINOIN
     Dosage: 100 MG, 1X/DAY
     Route: 048
     Dates: start: 20180914, end: 20181016
  5. MYORISAN [Suspect]
     Active Substance: ISOTRETINOIN
     Indication: ACNE
     Dosage: 40 MG, 1X/DAY
     Route: 048
     Dates: start: 20180615, end: 20180816
  6. MYORISAN [Suspect]
     Active Substance: ISOTRETINOIN
     Dosage: 100 MG, 1X/DAY
     Route: 048
     Dates: start: 20180914, end: 20181016
  7. MYORISAN [Suspect]
     Active Substance: ISOTRETINOIN
     Indication: ACNE
     Dosage: 80 MG, 1X/DAY
     Route: 048
     Dates: start: 20180816, end: 20180914

REACTIONS (2)
  - Pancreatitis [Recovered/Resolved]
  - Hypertriglyceridaemia [Recovered/Resolved]

NARRATIVE: CASE EVENT DATE: 20181016
